FAERS Safety Report 18288743 (Version 1)
Quarter: 2020Q3

REPORT INFORMATION
  Report Type: Spontaneous
  Country: PH (occurrence: PH)
  Receive Date: 20200921
  Receipt Date: 20200921
  Transmission Date: 20201103
  Serious: Yes (Hospitalization, Other)
  Sender: FDA-Public Use
  Company Number: PH-GLAXOSMITHKLINE-PH2020APC157532

PATIENT
  Age: 17 Year
  Sex: Female

DRUGS (17)
  1. TERBUTALINE [Suspect]
     Active Substance: TERBUTALINE
     Indication: UTERINE CONTRACTIONS DURING PREGNANCY
     Dosage: UNK
     Route: 058
  2. METHYLDOPA. [Suspect]
     Active Substance: METHYLDOPA
     Indication: GESTATIONAL HYPERTENSION
     Dosage: 1 DF, TID
  3. SALBUTAMOL [Suspect]
     Active Substance: ALBUTEROL
     Indication: PRODUCT USED FOR UNKNOWN INDICATION
     Dosage: UNK
  4. CLARITHROMYCIN. [Suspect]
     Active Substance: CLARITHROMYCIN
     Indication: PRODUCT USED FOR UNKNOWN INDICATION
     Dosage: UNK
  5. ETHAMBUTOL [Suspect]
     Active Substance: ETHAMBUTOL HYDROCHLORIDE
     Indication: TUBERCULOSIS
     Dosage: UNK UNK, 1D
  6. URSODEOXYCHOLIC ACID [Suspect]
     Active Substance: URSODIOL
     Indication: PRODUCT USED FOR UNKNOWN INDICATION
     Dosage: 2 DF, BID
  7. MICONAZOLE. [Suspect]
     Active Substance: MICONAZOLE
     Indication: VULVOVAGINAL CANDIDIASIS
     Dosage: 1200 MG (SINGLE DOSE)
     Route: 067
  8. ISOXSUPRINE [Suspect]
     Active Substance: ISOXSUPRINE
     Dosage: UNK
     Route: 041
  9. INDOMETHACIN. [Suspect]
     Active Substance: INDOMETHACIN
     Indication: UTERINE CONTRACTIONS DURING PREGNANCY
     Dosage: 1 DF
     Route: 054
  10. PYRAZINAMIDE. [Suspect]
     Active Substance: PYRAZINAMIDE
     Indication: TUBERCULOSIS
     Dosage: UNK, 1D
  11. MAGNESIUM SULFATE. [Suspect]
     Active Substance: MAGNESIUM SULFATE
     Indication: TOCOLYSIS
     Dosage: UNK
     Route: 041
  12. ISONIAZID. [Suspect]
     Active Substance: ISONIAZID
     Indication: TUBERCULOSIS
     Dosage: UNK UNK, 1D
  13. MICRONIZED PROGESTERONE [Suspect]
     Active Substance: PROGESTERONE
     Indication: PRODUCT USED FOR UNKNOWN INDICATION
     Dosage: UNK
  14. DEXAMETHASONE. [Suspect]
     Active Substance: DEXAMETHASONE
     Indication: PRODUCT USED FOR UNKNOWN INDICATION
     Dosage: 6 MG, BID (FOUR DOSES)
     Route: 030
  15. RIFAMPICIN [Suspect]
     Active Substance: RIFAMPIN
     Indication: TUBERCULOSIS
     Dosage: UNK UNK, 1D
  16. PREDNISONE. [Suspect]
     Active Substance: PREDNISONE
     Indication: PRODUCT USED FOR UNKNOWN INDICATION
     Dosage: UNK
  17. ISOXSUPRINE [Suspect]
     Active Substance: ISOXSUPRINE
     Indication: TOCOLYSIS
     Dosage: 1 DF, TID

REACTIONS (11)
  - Breech presentation [Unknown]
  - Self-medication [Unknown]
  - Exposure during pregnancy [Unknown]
  - Jaundice [Recovering/Resolving]
  - Hepatic enzyme increased [Recovering/Resolving]
  - Nausea [Recovering/Resolving]
  - Vomiting [Recovering/Resolving]
  - Live birth [Unknown]
  - Cholelithiasis [Recovering/Resolving]
  - Drug-induced liver injury [Recovering/Resolving]
  - Premature labour [Unknown]

NARRATIVE: CASE EVENT DATE: 20190702
